FAERS Safety Report 6725446-8 (Version None)
Quarter: 2010Q2

REPORT INFORMATION
  Report Type: 
  Country: None (occurrence: None)
  Receive Date: 20100514
  Receipt Date: 20100505
  Transmission Date: 20101027
  Serious: Yes (Hospitalization, Other)
  Sender: FDA-Public Use
  Company Number: FR-JNJFOC-20100503123

PATIENT
  Age: 30 Year
  Sex: Female

DRUGS (8)
  1. INFLIXIMAB [Suspect]
     Indication: PSORIASIS
     Route: 042
  2. ADALIMUMAB [Suspect]
     Indication: PSORIASIS
  3. ADALIMUMAB [Suspect]
  4. ZYPREXA [Suspect]
     Indication: PSYCHOTIC DISORDER
  5. ETANERCEPT [Suspect]
     Indication: PSORIASIS
  6. RISPERDAL [Concomitant]
     Indication: PSYCHOMOTOR RETARDATION
  7. RISPERDAL [Concomitant]
  8. RHEUMATREX [Concomitant]
     Indication: PSORIASIS

REACTIONS (2)
  - LUPUS-LIKE SYNDROME [None]
  - TREATMENT FAILURE [None]
